FAERS Safety Report 13655015 (Version 12)
Quarter: 2018Q1

REPORT INFORMATION
  Report Type: Report from Study
  Country: HU (occurrence: HU)
  Receive Date: 20170615
  Receipt Date: 20180227
  Transmission Date: 20180508
  Serious: Yes (Hospitalization)
  Sender: FDA-Public Use
  Company Number: HU-ROCHE-1950197

PATIENT
  Age: 72 Year
  Sex: Male
  Weight: 80 kg

DRUGS (13)
  1. THIOGAMMA [Concomitant]
     Active Substance: THIOCTIC ACID
     Route: 048
     Dates: start: 2012
  2. FORTEDOL [Concomitant]
     Indication: CYSTITIS NONINFECTIVE
     Route: 048
     Dates: start: 20170606
  3. FUROSEMID [Concomitant]
     Active Substance: FUROSEMIDE
     Dosage: 1 AMPULE
     Route: 042
     Dates: start: 20170624, end: 20170626
  4. FRONTIN [Concomitant]
     Active Substance: ALPRAZOLAM
     Indication: PROPHYLAXIS
     Route: 048
     Dates: start: 20170625, end: 20170625
  5. ATEZOLIZUMAB. [Suspect]
     Active Substance: ATEZOLIZUMAB
     Indication: MALIGNANT URINARY TRACT NEOPLASM
     Dosage: MOT RECENT DOSE PRIOR TO THE EVENT: 18/MAY/2017
     Route: 042
     Dates: start: 20170518
  6. FUROSEMID [Concomitant]
     Active Substance: FUROSEMIDE
     Indication: PROPHYLAXIS
     Dosage: 1 AMPULE
     Route: 042
     Dates: start: 20170620, end: 20170622
  7. LISONORM [Concomitant]
     Route: 048
     Dates: start: 2008
  8. MEFORAL [Concomitant]
     Active Substance: METFORMIN HYDROCHLORIDE
     Route: 048
     Dates: start: 2008
  9. ASPIRIN. [Concomitant]
     Active Substance: ASPIRIN
     Route: 048
     Dates: start: 2012
  10. ATORIS [Concomitant]
     Active Substance: ATORVASTATIN CALCIUM
     Route: 048
     Dates: start: 2008
  11. FUROSEMID [Concomitant]
     Active Substance: FUROSEMIDE
     Dosage: 2 AMPULE/ DAY
     Route: 042
     Dates: start: 20170623, end: 20170623
  12. LEVOLAC [Concomitant]
     Active Substance: LACTULOSE
     Indication: PROPHYLAXIS
     Route: 048
     Dates: start: 20170625, end: 20170625
  13. PANTOPRAZOLE [Concomitant]
     Active Substance: PANTOPRAZOLE
     Indication: CYSTITIS NONINFECTIVE
     Route: 048
     Dates: start: 20170606

REACTIONS (2)
  - Acute hepatic failure [Not Recovered/Not Resolved]
  - Hepatic function abnormal [Not Recovered/Not Resolved]

NARRATIVE: CASE EVENT DATE: 20170608
